FAERS Safety Report 21233841 (Version 1)
Quarter: 2022Q3

REPORT INFORMATION
  Report Type: Spontaneous
  Country: GB (occurrence: GB)
  Receive Date: 20220819
  Receipt Date: 20220819
  Transmission Date: 20221027
  Serious: Yes (Other)
  Sender: FDA-Public Use
  Company Number: GB-HALEON-GBCH2022GSK029432

PATIENT

DRUGS (1)
  1. SCOPOLAMINE HYDROBROMIDE [Suspect]
     Active Substance: SCOPOLAMINE HYDROBROMIDE
     Indication: Nausea
     Dosage: UNK

REACTIONS (8)
  - Pupil fixed [Not Recovered/Not Resolved]
  - Anisocoria [Not Recovered/Not Resolved]
  - Foreign body in eye [Unknown]
  - Hypertension [Unknown]
  - Fatigue [Unknown]
  - Dry mouth [Unknown]
  - Dizziness [Unknown]
  - Somnolence [Unknown]

NARRATIVE: CASE EVENT DATE: 20220808
